FAERS Safety Report 9737221 (Version 1)
Quarter: 2013Q4

REPORT INFORMATION
  Report Type: Spontaneous
  Country: US (occurrence: US)
  Receive Date: 20131206
  Receipt Date: 20131206
  Transmission Date: 20140711
  Serious: No
  Sender: FDA-Public Use
  Company Number: US-B.I. PHARMACEUTICALS,INC./RIDGEFIELD-2013-BI-38993BP

PATIENT
  Age: 55 Year
  Sex: Male
  Weight: 91 kg

DRUGS (5)
  1. COMBIVENT [Suspect]
     Indication: CHRONIC OBSTRUCTIVE PULMONARY DISEASE
     Dosage: STRENGTH: 20 MCG / 100 MCG; DAILY DOSE: 80MCG/400MCG
     Route: 055
     Dates: start: 201307
  2. GABAPENTIN [Concomitant]
     Indication: BACK PAIN
     Route: 048
  3. VALIUM [Concomitant]
     Indication: BACK PAIN
     Route: 048
  4. HYDROCODONE [Concomitant]
     Indication: BACK PAIN
     Route: 048
  5. COMBIVENT CFC [Concomitant]
     Indication: EMPHYSEMA
     Route: 055
     Dates: start: 2010, end: 201306

REACTIONS (2)
  - Choking [Not Recovered/Not Resolved]
  - Cough [Not Recovered/Not Resolved]
